FAERS Safety Report 10067429 (Version 1)
Quarter: 2014Q2

REPORT INFORMATION
  Report Type: Spontaneous
  Country: US (occurrence: None)
  Receive Date: 20140407
  Receipt Date: 20140407
  Transmission Date: 20141212
  Serious: Yes (Hospitalization)
  Sender: FDA-Public Use
  Company Number: UTC-046645

PATIENT
  Age: 65 Year
  Sex: Female

DRUGS (3)
  1. TYVASO [Suspect]
     Indication: PULMONARY ARTERIAL HYPERTENSION
     Dosage: 18-54 UG
     Route: 055
     Dates: start: 20130628
  2. REVATIO (SILDENAFIL CITRATE) (UNKNOWN) [Concomitant]
  3. WARFARIN (WARFARIN) (UNKNOWN) [Concomitant]

REACTIONS (1)
  - Chest pain [None]
